FAERS Safety Report 9235540 (Version 1)
Quarter: 2013Q2

REPORT INFORMATION
  Report Type: Spontaneous
  Country: US (occurrence: None)
  Receive Date: 20130416
  Receipt Date: 20130416
  Transmission Date: 20140414
  Serious: Yes (Other)
  Sender: FDA-Public Use
  Company Number: None

PATIENT
  Age: 71 Year
  Sex: Female

DRUGS (1)
  1. TACROLIMUS [Suspect]
     Indication: RENAL IMPAIRMENT
     Route: 048
     Dates: start: 20120222

REACTIONS (2)
  - Squamous cell carcinoma [None]
  - Hypoaesthesia oral [None]
